FAERS Safety Report 24927244 (Version 2)
Quarter: 2025Q1

REPORT INFORMATION
  Report Type: Report from Study
  Country: EG (occurrence: EG)
  Receive Date: 20250205
  Receipt Date: 20250321
  Transmission Date: 20250409
  Serious: Yes (Other)
  Sender: EMD SERONO INC
  Company Number: EG-Merck Healthcare KGaA-2025004502

PATIENT
  Age: 45 Year
  Sex: Female

DRUGS (8)
  1. REBIF [Suspect]
     Active Substance: INTERFERON BETA-1A
     Indication: Multiple sclerosis
     Dates: start: 20190105
  2. REBIF [Suspect]
     Active Substance: INTERFERON BETA-1A
  3. DEVAROL S [Concomitant]
     Indication: Product used for unknown indication
     Dosage: AMPOULE, ONGOING
  4. OCTOZINC [Concomitant]
     Indication: Product used for unknown indication
  5. FISH OIL [Concomitant]
     Active Substance: FISH OIL
     Indication: Product used for unknown indication
     Dosage: ONGOING
  6. MAGNESIUM PLUS [MAGNESIUM] [Concomitant]
     Indication: Product used for unknown indication
     Dosage: MAG. OXIDE 400MG PLUS MG. GLUCONATE 100MG?ONGOING
  7. POTASSIUM [Concomitant]
     Active Substance: POTASSIUM
     Indication: Product used for unknown indication
     Dosage: 3.3 GM/100 ML SYRUP 120 ML?ONGOING
  8. VITAMIN C [Concomitant]
     Active Substance: ASCORBIC ACID
     Indication: Product used for unknown indication

REACTIONS (2)
  - Colitis [Recovered/Resolved]
  - Gastritis [Recovered/Resolved]

NARRATIVE: CASE EVENT DATE: 20240826
